FAERS Safety Report 6531478-5 (Version None)
Quarter: 2010Q1

REPORT INFORMATION
  Report Type: 
  Country: None (occurrence: None)
  Receive Date: 20100108
  Receipt Date: 20091224
  Transmission Date: 20100710
  Serious: Yes (Other)
  Sender: FDA-Public Use
  Company Number: US-SANOFI-AVENTIS-2009SA000662

PATIENT
  Age: 48 Year
  Sex: Male
  Weight: 81.7 kg

DRUGS (14)
  1. OXALIPLATIN [Suspect]
     Indication: COLORECTAL CANCER
     Route: 041
     Dates: start: 09090904, end: 20090904
  2. OXALIPLATIN [Suspect]
     Route: 041
     Dates: start: 20090821, end: 20090821
  3. OXALIPLATIN [Suspect]
     Route: 041
     Dates: start: 20090807, end: 20090807
  4. FLUOROURACIL [Suspect]
     Indication: COLORECTAL CANCER
     Route: 040
     Dates: start: 20090904, end: 20090904
  5. FLUOROURACIL [Suspect]
     Route: 041
     Dates: start: 20090904, end: 20090906
  6. FLUOROURACIL [Suspect]
     Route: 040
     Dates: start: 20090821, end: 20090821
  7. FLUOROURACIL [Suspect]
     Route: 041
     Dates: start: 20090821, end: 20090823
  8. FLUOROURACIL [Suspect]
     Route: 040
     Dates: start: 20090807, end: 20090807
  9. FLUOROURACIL [Suspect]
     Route: 041
     Dates: start: 20090807, end: 20090809
  10. ANTINEOPLASTIC AGENTS [Suspect]
     Indication: COLORECTAL CANCER
     Route: 048
     Dates: start: 20090807, end: 20090808
  11. ANTINEOPLASTIC AGENTS [Suspect]
     Route: 048
     Dates: start: 20090809, end: 20090917
  12. ANTINEOPLASTIC AGENTS [Suspect]
     Route: 048
     Dates: start: 20091009
  13. CARBAMAZEPINE [Concomitant]
     Route: 065
     Dates: start: 20080101
  14. LISINOPRIL [Concomitant]
     Indication: HYPERTENSION
     Route: 065
     Dates: start: 20080101

REACTIONS (6)
  - BLOOD PHOSPHORUS DECREASED [None]
  - DIARRHOEA [None]
  - FATIGUE [None]
  - HAEMOGLOBIN DECREASED [None]
  - NEUTROPENIA [None]
  - WHITE BLOOD CELL COUNT DECREASED [None]
